FAERS Safety Report 5026359-2 (Version None)
Quarter: 2006Q2

REPORT INFORMATION
  Report Type: 
  Country: None (occurrence: None)
  Receive Date: 20060615
  Receipt Date: 20060210
  Transmission Date: 20061013
  Serious: Yes (Hospitalization, Disabling)
  Sender: FDA-Public Use
  Company Number: HQWYE793414FEB06

PATIENT
  Sex: Male

DRUGS (23)
  1. ENBREL [Suspect]
     Indication: RHEUMATOID ARTHRITIS
     Route: 058
     Dates: start: 20051129, end: 20060314
  2. LASIX [Suspect]
     Route: 048
     Dates: start: 20051215, end: 20051227
  3. ADALAT [Concomitant]
     Route: 065
  4. GASMOTIN [Concomitant]
     Route: 065
  5. TEPRENONE [Concomitant]
     Route: 065
  6. LANSOPRAZOLE [Concomitant]
     Route: 065
  7. CALCITRIOL [Concomitant]
     Route: 065
  8. CALCIUM LACTATE [Concomitant]
     Route: 065
  9. BIOFERMIN [Concomitant]
     Route: 065
  10. ISCOTIN [Concomitant]
     Route: 065
  11. LEVOGLUTAMIDE/SODIUM GUALENATE [Concomitant]
     Route: 065
  12. SULFAMETHOXAZOLE + TRIMETHOPRIM [Concomitant]
     Route: 065
  13. EBRANTIL [Concomitant]
     Route: 065
  14. NITRODERM [Concomitant]
     Route: 065
  15. SODIUM BICARBONATE [Concomitant]
     Route: 065
  16. ALLOPURINOL [Concomitant]
     Route: 065
  17. PREDONINE [Concomitant]
     Route: 065
  18. DIMETHYL SULFOXIDE [Concomitant]
     Route: 065
  19. ALBUMIN (HUMAN) [Concomitant]
     Route: 065
  20. IMMUNE GLOBULIN INTRAVENOUS (HUMAN) [Concomitant]
     Route: 065
  21. NEO DOPASTON [Concomitant]
     Route: 065
  22. LANDEL [Concomitant]
     Route: 065
  23. PYRIDOXAL PHOSPHATE [Concomitant]
     Route: 065

REACTIONS (3)
  - CONDITION AGGRAVATED [None]
  - PLEURAL EFFUSION [None]
  - RENAL FAILURE [None]
